FAERS Safety Report 12940015 (Version 1)
Quarter: 2016Q4

REPORT INFORMATION
  Report Type: Spontaneous
  Country: US (occurrence: US)
  Receive Date: 20161115
  Receipt Date: 20161115
  Transmission Date: 20170207
  Serious: Yes (Disabling)
  Sender: FDA-Public Use
  Company Number: None

PATIENT
  Age: 68 Year
  Sex: Male
  Weight: 90.9 kg

DRUGS (1)
  1. CIPROFLOXACN [Suspect]
     Active Substance: CIPROFLOXACIN
     Indication: URINARY TRACT INFECTION
     Dosage: ?          QUANTITY:20 TABLET(S);?
     Route: 048
     Dates: start: 20161109, end: 20161115

REACTIONS (5)
  - Joint swelling [None]
  - Haematochezia [None]
  - Abasia [None]
  - Headache [None]
  - Pain in extremity [None]

NARRATIVE: CASE EVENT DATE: 20161114
